FAERS Safety Report 18474174 (Version 1)
Quarter: 2020Q4

REPORT INFORMATION
  Report Type: Spontaneous
  Country: SE (occurrence: SE)
  Receive Date: 20201106
  Receipt Date: 20201106
  Transmission Date: 20210114
  Serious: Yes (Other)
  Sender: FDA-Public Use
  Company Number: SE-MYLANLABS-2020M1092711

PATIENT
  Age: 16 Year
  Sex: Female

DRUGS (1)
  1. THACAPZOL 5 MG TABLETTER [Suspect]
     Active Substance: METHIMAZOLE
     Indication: BASEDOW^S DISEASE
     Dosage: 20 MILLIGRAM, QD
     Route: 048
     Dates: start: 20200605, end: 20200907

REACTIONS (1)
  - Polyarthritis [Unknown]

NARRATIVE: CASE EVENT DATE: 202007
